FAERS Safety Report 8791076 (Version 2)
Quarter: 2012Q4

REPORT INFORMATION
  Report Type: Spontaneous
  Country: US (occurrence: None)
  Receive Date: 20120907
  Receipt Date: 20120920
  Transmission Date: 20130627
  Serious: Yes (Hospitalization, Other)
  Sender: FDA-Public Use
  Company Number: 2012PROUSA01908

PATIENT
  Age: 76 Year
  Sex: Male
  Weight: 97.5 kg

DRUGS (6)
  1. PROVENGE (SIPULEUCEL-T) SUSPENSION, 250ML [Suspect]
     Indication: PROSTATE CANCER METASTATIC
     Route: 042
     Dates: start: 20120802, end: 20120802
  2. PROVENGE (SIPULEUCEL-T) SUSPENSION, 250ML [Suspect]
     Indication: PROSTATE CANCER METASTATIC
     Route: 042
     Dates: start: 20120816, end: 20120816
  3. ASPIRIN (ACETYLSALICYLIC ACID) [Concomitant]
  4. BICALUTAMIDE (BICALUTAMIDE) [Concomitant]
  5. LUPRON (LEUPRORELIN ACETATE) [Concomitant]
  6. SIMVASTATIN (SIMVASTATIN) [Concomitant]

REACTIONS (9)
  - Transient ischaemic attack [None]
  - Anaemia [None]
  - Nausea [None]
  - Fatigue [None]
  - Electrocardiogram U-wave abnormality [None]
  - Cardiomegaly [None]
  - Atelectasis [None]
  - Chest X-ray abnormal [None]
  - Headache [None]
